FAERS Safety Report 24931287 (Version 1)
Quarter: 2025Q1

REPORT INFORMATION
  Report Type: Spontaneous
  Country: US (occurrence: US)
  Receive Date: 20250205
  Receipt Date: 20250205
  Transmission Date: 20250409
  Serious: No
  Sender: AURINIA PHARMACEUTICALS
  Company Number: US-AURINIA PHARMACEUTICALS INC.-AUR-006340

PATIENT
  Sex: Female

DRUGS (1)
  1. LUPKYNIS [Suspect]
     Active Substance: VOCLOSPORIN
     Indication: Lupus nephritis
     Dosage: 23.7 MILLIGRAM, BID
     Route: 048
     Dates: start: 20240516

REACTIONS (6)
  - Blood cholesterol increased [Unknown]
  - Blood potassium increased [Unknown]
  - Protein total increased [Unknown]
  - Asthenia [Unknown]
  - Absence of immediate treatment response [Unknown]
  - Therapy interrupted [Unknown]
